FAERS Safety Report 21105903 (Version 2)
Quarter: 2022Q3

REPORT INFORMATION
  Report Type: Spontaneous
  Country: EC (occurrence: EC)
  Receive Date: 20220720
  Receipt Date: 20220824
  Transmission Date: 20221027
  Serious: Yes (Other)
  Sender: FDA-Public Use
  Company Number: EC-PFIZER INC-PV202200024015

PATIENT
  Age: 13 Year
  Sex: Female

DRUGS (1)
  1. GENOTROPIN [Suspect]
     Active Substance: SOMATROPIN
     Indication: Growth hormone deficiency
     Dosage: UNK
     Route: 058
     Dates: start: 20210728

REACTIONS (1)
  - Scoliosis [Not Recovered/Not Resolved]
